FAERS Safety Report 24062320 (Version 1)
Quarter: 2024Q3

REPORT INFORMATION
  Report Type: Spontaneous
  Country: FR (occurrence: FR)
  Receive Date: 20240708
  Receipt Date: 20240708
  Transmission Date: 20241017
  Serious: Yes (Life-Threatening)
  Sender: SANDOZ
  Company Number: None

PATIENT
  Age: 80 Year
  Sex: Male
  Weight: 60 kg

DRUGS (3)
  1. ALIZAPRIDE [Suspect]
     Active Substance: ALIZAPRIDE
     Indication: Prophylaxis
     Dosage: 100 MG (TOTAL)
     Route: 042
     Dates: start: 20210809, end: 20210809
  2. ONDANSETRON [Suspect]
     Active Substance: ONDANSETRON
     Indication: Prophylaxis
     Dosage: 8 MG (TOTAL)
     Route: 042
     Dates: start: 20210809, end: 20210809
  3. PACLITAXEL [Suspect]
     Active Substance: PACLITAXEL
     Indication: Bronchial carcinoma
     Dosage: 270 MG, CYCLIC
     Route: 041
     Dates: start: 20210809, end: 20210809

REACTIONS (1)
  - Anaphylactic reaction [Recovered/Resolved]

NARRATIVE: CASE EVENT DATE: 20210809
